FAERS Safety Report 14918092 (Version 1)
Quarter: 2018Q2

REPORT INFORMATION
  Report Type: Spontaneous
  Country: US (occurrence: US)
  Receive Date: 20180502
  Receipt Date: 20180502
  Transmission Date: 20180711
  Serious: No
  Sender: FDA-Public Use
  Company Number: None

PATIENT
  Age: 32 Year
  Sex: Male
  Weight: 73.35 kg

DRUGS (4)
  1. ORGANIC HOLY GRAIL HAIR NAIL AND SKIN VITAMINS [Concomitant]
  2. MYLAN 477 DIAZEPAM [Suspect]
     Active Substance: DIAZEPAM
     Indication: ANXIETY
     Dosage: ?          QUANTITY:60 TABLET(S);?
     Route: 048
  3. FISH OIL [Concomitant]
     Active Substance: FISH OIL
  4. FLOVENT NASAL SPRAY [Concomitant]

REACTIONS (9)
  - Drug ineffective [None]
  - Pruritus [None]
  - Screaming [None]
  - Insurance issue [None]
  - Insomnia [None]
  - Extra dose administered [None]
  - Restlessness [None]
  - Discomfort [None]
  - Product substitution issue [None]

NARRATIVE: CASE EVENT DATE: 20180303
